FAERS Safety Report 5862779-1 (Version None)
Quarter: 2008Q3

REPORT INFORMATION
  Report Type: 
  Country: None (occurrence: None)
  Receive Date: 20080818
  Receipt Date: 20080418
  Transmission Date: 20090109
  Serious: No
  Sender: FDA-Public Use
  Company Number: WAES 0804USA04100

PATIENT
  Age: 69 Year
  Sex: Male
  Weight: 99.7913 kg

DRUGS (5)
  1. JANUVIA [Suspect]
     Indication: TYPE 2 DIABETES MELLITUS
     Dosage: 100 MG/DAILY/PO
     Route: 048
     Dates: end: 20080423
  2. ACTOS [Concomitant]
  3. ZOCOR [Concomitant]
  4. METFORMIN HCL [Concomitant]
  5. VERAPAMIL [Concomitant]

REACTIONS (1)
  - PLEURAL EFFUSION [None]
